FAERS Safety Report 11132738 (Version 1)
Quarter: 2015Q2

REPORT INFORMATION
  Report Type: Spontaneous
  Country: US (occurrence: US)
  Receive Date: 20150522
  Receipt Date: 20150522
  Transmission Date: 20150821
  Serious: Yes (Life-Threatening, Hospitalization)
  Sender: FDA-Public Use
  Company Number: US-BRACCO-012168

PATIENT
  Age: 71 Year
  Sex: Male
  Weight: 102 kg

DRUGS (7)
  1. SODIUM CHLORIDE. [Concomitant]
     Active Substance: SODIUM CHLORIDE
     Route: 042
     Dates: start: 20150508, end: 20150508
  2. NORVASC [Concomitant]
     Active Substance: AMLODIPINE BESYLATE
  3. ISOVUE 370 [Suspect]
     Active Substance: IOPAMIDOL
     Indication: COMPUTERISED TOMOGRAM ABDOMEN
     Route: 042
     Dates: start: 20150508, end: 20150508
  4. LASIX [Concomitant]
     Active Substance: FUROSEMIDE
  5. ATENOLOL. [Concomitant]
     Active Substance: ATENOLOL
  6. LISINOPRIL. [Concomitant]
     Active Substance: LISINOPRIL
  7. PRADAXA [Concomitant]
     Active Substance: DABIGATRAN ETEXILATE MESYLATE

REACTIONS (3)
  - Anaphylactic shock [Recovered/Resolved]
  - Pneumonia aspiration [Recovering/Resolving]
  - Cardio-respiratory arrest [Recovered/Resolved]

NARRATIVE: CASE EVENT DATE: 20150508
